FAERS Safety Report 7003090-5 (Version None)
Quarter: 2010Q3

REPORT INFORMATION
  Report Type: 
  Country: None (occurrence: None)
  Receive Date: 20100920
  Receipt Date: 20100203
  Transmission Date: 20110219
  Serious: No
  Sender: FDA-Public Use
  Company Number: US-ASTRAZENECA-2010SE05181

PATIENT
  Age: 18 Year
  Sex: Male

DRUGS (5)
  1. SEROQUEL XR [Suspect]
     Indication: DEPRESSION
     Route: 048
     Dates: start: 20091223, end: 20091225
  2. SEROQUEL XR [Suspect]
     Indication: MOOD SWINGS
     Route: 048
     Dates: start: 20091223, end: 20091225
  3. SEROQUEL XR [Suspect]
     Route: 048
     Dates: start: 20091225
  4. SEROQUEL XR [Suspect]
     Route: 048
     Dates: start: 20091225
  5. CYMBALTA [Concomitant]

REACTIONS (5)
  - ALANINE AMINOTRANSFERASE INCREASED [None]
  - BLOOD TRIGLYCERIDES INCREASED [None]
  - GASTRIC DISORDER [None]
  - LOW DENSITY LIPOPROTEIN INCREASED [None]
  - SOMNOLENCE [None]
